FAERS Safety Report 11312024 (Version 8)
Quarter: 2016Q4

REPORT INFORMATION
  Report Type: Report from Study
  Country: CA (occurrence: CA)
  Receive Date: 20150727
  Receipt Date: 20161020
  Transmission Date: 20170206
  Serious: Yes (Other)
  Sender: FDA-Public Use
  Company Number: PHHY2015CA087664

PATIENT
  Age: 50 Year
  Sex: Female

DRUGS (2)
  1. GILENYA [Suspect]
     Active Substance: FINGOLIMOD HYDROCHLORIDE
     Dosage: 0.5 MG, QD
     Route: 048
     Dates: start: 20151029
  2. GILENYA [Suspect]
     Active Substance: FINGOLIMOD HYDROCHLORIDE
     Indication: MULTIPLE SCLEROSIS
     Dosage: 0.5 MG, QD
     Route: 048
     Dates: start: 20150414, end: 20150929

REACTIONS (10)
  - Loss of consciousness [Recovering/Resolving]
  - Nasopharyngitis [Unknown]
  - General physical health deterioration [Recovering/Resolving]
  - Upper-airway cough syndrome [Recovering/Resolving]
  - Cough [Recovered/Resolved]
  - Influenza [Unknown]
  - Pneumonia [Recovered/Resolved]
  - Asthenia [Recovering/Resolving]
  - Oropharyngeal pain [Recovering/Resolving]
  - Limb discomfort [Recovered/Resolved]

NARRATIVE: CASE EVENT DATE: 2015
